FAERS Safety Report 5840009-4 (Version None)
Quarter: 2008Q3

REPORT INFORMATION
  Report Type: 
  Country: None (occurrence: None)
  Receive Date: 20080811
  Receipt Date: 20080805
  Transmission Date: 20090109
  Serious: Yes (Hospitalization)
  Sender: FDA-Public Use
  Company Number: US-BAYER-200812984BCC

PATIENT
  Age: 77 Year
  Sex: Female
  Weight: 77 kg

DRUGS (1)
  1. ASPIRIN [Suspect]
     Indication: ISCHAEMIC HEART DISEASE PROPHYLAXIS
     Dosage: AS USED: 81 MG  UNIT DOSE: 81 MG
     Route: 048
     Dates: end: 20050101

REACTIONS (5)
  - BREAST CANCER FEMALE [None]
  - FATIGUE [None]
  - HAEMORRHAGIC DIATHESIS [None]
  - MYOCARDIAL INFARCTION [None]
  - NAUSEA [None]
